FAERS Safety Report 7768443-6 (Version None)
Quarter: 2011Q3

REPORT INFORMATION
  Report Type: 
  Country: None (occurrence: None)
  Receive Date: 20110922
  Receipt Date: 20101027
  Transmission Date: 20111222
  Serious: No
  Sender: FDA-Public Use
  Company Number: US-ASTRAZENECA-2010SE51136

PATIENT
  Age: 44 Year
  Sex: Female
  Weight: 71.2 kg

DRUGS (8)
  1. LAMICTAL [Concomitant]
  2. SEROQUEL [Suspect]
     Indication: INSOMNIA
     Route: 048
     Dates: start: 20070101
  3. LEVOTHYROXINE SODIUM [Concomitant]
  4. ABILIFY [Concomitant]
  5. SEROQUEL [Suspect]
     Route: 048
     Dates: start: 20080101
  6. TRAZODONE HYDROCHLORIDE [Concomitant]
  7. SEROQUEL [Suspect]
     Route: 048
  8. LOVASTATIN [Concomitant]

REACTIONS (8)
  - THYROID DISORDER [None]
  - THIRST [None]
  - HYPERTRIGLYCERIDAEMIA [None]
  - BLOOD PRESSURE INCREASED [None]
  - TACHYCARDIA [None]
  - NAUSEA [None]
  - DIZZINESS [None]
  - WEIGHT INCREASED [None]
